FAERS Safety Report 22010686 (Version 1)
Quarter: 2023Q1

REPORT INFORMATION
  Report Type: Spontaneous
  Country: US (occurrence: US)
  Receive Date: 20230220
  Receipt Date: 20230220
  Transmission Date: 20230418
  Serious: No
  Sender: FDA-Public Use
  Company Number: US-BRISTOL-MYERS SQUIBB COMPANY-2023-024564

PATIENT
  Age: 69 Year
  Sex: Female

DRUGS (1)
  1. LENALIDOMIDE [Suspect]
     Active Substance: LENALIDOMIDE
     Indication: Stem cell transplant
     Route: 048

REACTIONS (7)
  - Constipation [Unknown]
  - Skin odour abnormal [Unknown]
  - Decreased appetite [Unknown]
  - Myalgia [Unknown]
  - Bone pain [Unknown]
  - Arthritis [Unknown]
  - Balance disorder [Unknown]
